FAERS Safety Report 6049158-1 (Version None)
Quarter: 2009Q1

REPORT INFORMATION
  Report Type: 
  Country: None (occurrence: None)
  Receive Date: 20090123
  Receipt Date: 20090112
  Transmission Date: 20090719
  Serious: Yes (Hospitalization, Disabling, Other)
  Sender: FDA-Public Use
  Company Number: US-ELI_LILLY_AND_COMPANY-US200810005200

PATIENT
  Sex: Female

DRUGS (3)
  1. FORTEO [Suspect]
     Indication: OSTEOPOROSIS
     Dosage: 20 UG, DAILY (1/D)
     Route: 058
     Dates: start: 20060101, end: 20080101
  2. CALCIUM [Concomitant]
     Dosage: 500 MG, 2/D
  3. VITAMIN D [Concomitant]

REACTIONS (10)
  - ABDOMINAL PAIN UPPER [None]
  - ASTHENIA [None]
  - BILE DUCT OBSTRUCTION [None]
  - BLOOD SODIUM DECREASED [None]
  - DYSPHAGIA [None]
  - MOBILITY DECREASED [None]
  - PAIN IN EXTREMITY [None]
  - PANCREATITIS [None]
  - PNEUMONIA [None]
  - STUPOR [None]
